FAERS Safety Report 7457933-1 (Version None)
Quarter: 2011Q2

REPORT INFORMATION
  Report Type: 
  Country: None (occurrence: None)
  Receive Date: 20110504
  Receipt Date: 20110429
  Transmission Date: 20111010
  Serious: Yes (Other)
  Sender: FDA-Public Use
  Company Number: SG-PFIZER INC-2011093233

PATIENT
  Age: 68 Year
  Sex: Female

DRUGS (5)
  1. METOPROLOL [Concomitant]
     Dosage: 12.5 MG, 2X/DAY
     Route: 048
     Dates: start: 20100610
  2. OMEPRAZOLE [Concomitant]
     Dosage: 20 MG, 2X/DAY
     Route: 048
  3. SIMVASTATIN [Concomitant]
     Dosage: 20 MG, 1X/DAY
     Route: 048
  4. PANADOL [Concomitant]
     Dosage: 1 G, 4X/DAY
     Route: 048
  5. DILANTIN [Suspect]
     Dosage: 300 MG, 1X/DAY
     Route: 048
     Dates: start: 20100515, end: 20100626

REACTIONS (1)
  - ERYTHEMA MULTIFORME [None]
